FAERS Safety Report 6967405-6 (Version None)
Quarter: 2010Q3

REPORT INFORMATION
  Report Type: 
  Country: None (occurrence: None)
  Receive Date: 20100823
  Receipt Date: 20100430
  Transmission Date: 20110219
  Serious: No
  Sender: FDA-Public Use
  Company Number: 011214

PATIENT
  Sex: Female
  Weight: 74.8 kg

DRUGS (13)
  1. CIMZIA [Suspect]
     Indication: RHEUMATOID ARTHRITIS
     Dosage: (SUBCUTANEOUS)
     Route: 058
     Dates: start: 20100324
  2. AZITHROMYCIN [Suspect]
     Indication: UPPER RESPIRATORY TRACT CONGESTION
     Dosage: (500 MG QD ORAL)
     Route: 048
     Dates: start: 20100427, end: 20100427
  3. XOPENEX [Concomitant]
  4. PULMICORT [Concomitant]
  5. SINGULAIR [Concomitant]
  6. ZYRTEC [Concomitant]
  7. ULTRAM [Concomitant]
  8. MICARDIS [Concomitant]
  9. NEXIUM [Concomitant]
  10. ALISKIREN [Concomitant]
  11. NEBIVOLOL HCL [Concomitant]
  12. ZETIA [Concomitant]
  13. VITAMINS, OTHER COMBINATIONS [Concomitant]

REACTIONS (4)
  - CHEST DISCOMFORT [None]
  - COUGH [None]
  - FOOD POISONING [None]
  - PRURITUS [None]
